FAERS Safety Report 22228184 (Version 1)
Quarter: 2023Q2

REPORT INFORMATION
  Report Type: Spontaneous
  Country: CA (occurrence: CA)
  Receive Date: 20230419
  Receipt Date: 20230419
  Transmission Date: 20230722
  Serious: Yes (Hospitalization)
  Sender: FDA-Public Use
  Company Number: CA-BTGSP-CA-BTGSP-23-0072

PATIENT
  Age: 68 Year
  Sex: Male
  Weight: 94.4 kg

DRUGS (3)
  1. VORAXAZE [Suspect]
     Active Substance: GLUCARPIDASE
     Indication: Toxicity to various agents
     Dosage: 3000 IU INTERNATIONAL UNIT(S)
     Route: 042
     Dates: start: 20220108, end: 20220108
  2. METHOTREXATE [Suspect]
     Active Substance: METHOTREXATE
     Indication: Non-Hodgkin^s lymphoma
     Dosage: 7400 MILLIGRAM
     Route: 041
  3. LEUCOVORIN CALCIUM [Concomitant]
     Active Substance: LEUCOVORIN CALCIUM
     Indication: Toxicity to various agents
     Dosage: INCREASED TO 900 MG/M2 EVERY 3 H
     Route: 042

REACTIONS (6)
  - Hypervolaemia [Recovered/Resolved]
  - Nephropathy toxic [Recovered/Resolved]
  - Laboratory test interference [Recovered/Resolved]
  - Rebound effect [Unknown]
  - Off label use [Recovered/Resolved]
  - Underdose [Recovered/Resolved]

NARRATIVE: CASE EVENT DATE: 20220107
